FAERS Safety Report 4551616-3 (Version None)
Quarter: 2005Q1

REPORT INFORMATION
  Report Type: 
  Country: None (occurrence: None)
  Receive Date: 20050113
  Receipt Date: 20041222
  Transmission Date: 20050727
  Serious: Yes (Other)
  Sender: FDA-Public Use
  Company Number: NL-GLAXOSMITHKLINE-B0363807A

PATIENT
  Age: 57 Year
  Sex: Female

DRUGS (1)
  1. CLOBETASOL PROPIONATE [Suspect]
     Indication: ATROPHY
     Dosage: 1APP PER DAY
     Dates: start: 20041101

REACTIONS (6)
  - ANGIONEUROTIC OEDEMA [None]
  - HEADACHE [None]
  - MALAISE [None]
  - MYALGIA [None]
  - OROPHARYNGEAL SWELLING [None]
  - SWELLING FACE [None]
